FAERS Safety Report 9271157 (Version 1)
Quarter: 2013Q2

REPORT INFORMATION
  Report Type: Spontaneous
  Country: US (occurrence: US)
  Receive Date: 20130506
  Receipt Date: 20130506
  Transmission Date: 20140414
  Serious: Yes (Other)
  Sender: FDA-Public Use
  Company Number: PHEH2013US009785

PATIENT
  Sex: Female

DRUGS (3)
  1. ARCAPTA [Suspect]
     Dosage: 75 UG, UNK
  2. VITAMINS NOS [Concomitant]
  3. ALVESCO [Concomitant]

REACTIONS (1)
  - Asthma [Unknown]
